FAERS Safety Report 5237291-3 (Version None)
Quarter: 2007Q1

REPORT INFORMATION
  Report Type: 
  Country: None (occurrence: None)
  Receive Date: 20070213
  Receipt Date: 20070205
  Transmission Date: 20070707
  Serious: Yes (Hospitalization)
  Sender: FDA-Public Use
  Company Number: BR-JNJFOC-20070201976

PATIENT
  Age: 25 Year
  Sex: Female
  Weight: 62 kg

DRUGS (3)
  1. TOPAMAX [Suspect]
     Route: 048
  2. TOPAMAX [Suspect]
     Indication: AFFECTIVE DISORDER
     Route: 048
  3. SERTRALINE [Concomitant]
     Indication: AFFECTIVE DISORDER

REACTIONS (2)
  - OFF LABEL USE [None]
  - SKIN LESION [None]
